FAERS Safety Report 5538275-8 (Version None)
Quarter: 2007Q4

REPORT INFORMATION
  Report Type: 
  Country: None (occurrence: None)
  Receive Date: 20071123
  Receipt Date: 20070827
  Transmission Date: 20080405
  Serious: Yes (Other)
  Sender: FDA-Public Use
  Company Number: US-JNJFOC-20070805898

PATIENT
  Age: 33 Year
  Sex: Female
  Weight: 52.1637 kg

DRUGS (3)
  1. LEVAQUIN [Suspect]
     Indication: BRONCHITIS
     Dosage: 500 MG, 1 IN 1 DAY, ORAL
     Route: 048
     Dates: start: 20070701, end: 20070701
  2. SINGULIN   (MONTELUKAST SODIUM) TABLET [Concomitant]
  3. INHALER           (ANTI-ASTHMATICS) UNSPECIFIED [Concomitant]

REACTIONS (5)
  - ARTHRALGIA [None]
  - DYSPNOEA [None]
  - HEADACHE [None]
  - MENTAL DISORDER [None]
  - PARAESTHESIA [None]
